FAERS Safety Report 8551060-8 (Version None)
Quarter: 2012Q3

REPORT INFORMATION
  Report Type: 
  Country: None (occurrence: None)
  Receive Date: 20120730
  Receipt Date: 20111227
  Transmission Date: 20120928
  Serious: No
  Sender: FDA-Public Use
  Company Number: US-ALLERGAN-1116915US

PATIENT
  Sex: Female

DRUGS (5)
  1. LUMIGAN [Suspect]
     Indication: ANGLE CLOSURE GLAUCOMA
     Dosage: 2 GTT, QHS
     Route: 047
     Dates: start: 20100701, end: 20101001
  2. TIMOLOL MALEATE [Concomitant]
     Indication: ANGLE CLOSURE GLAUCOMA
     Dosage: UNK
     Route: 047
     Dates: start: 20100701, end: 20100801
  3. LUMIGAN [Suspect]
     Indication: ANGLE CLOSURE GLAUCOMA
  4. PREDNISOLONE ACETATE [Concomitant]
     Indication: ANGLE CLOSURE GLAUCOMA
     Dosage: UNK
     Route: 047
     Dates: start: 20100701, end: 20100801
  5. LUMIGAN [Suspect]
     Indication: INTRAOCULAR PRESSURE INCREASED

REACTIONS (2)
  - ABNORMAL SENSATION IN EYE [None]
  - HEADACHE [None]
